FAERS Safety Report 13682810 (Version 3)
Quarter: 2017Q4

REPORT INFORMATION
  Report Type: Spontaneous
  Country: US (occurrence: US)
  Receive Date: 20170623
  Receipt Date: 20171010
  Transmission Date: 20180320
  Serious: Yes (Other)
  Sender: FDA-Public Use
  Company Number: US-MALLINCKRODT-T201700078

PATIENT
  Age: 45 Year
  Sex: Female

DRUGS (2)
  1. H.P. ACTHAR [Suspect]
     Active Substance: CORTICOTROPIN
     Indication: BLADDER DISORDER
     Dosage: 80 UNITS TWICE WEEKLY
     Route: 058
     Dates: start: 20150728
  2. H.P. ACTHAR [Suspect]
     Active Substance: CORTICOTROPIN
     Indication: SYSTEMIC LUPUS ERYTHEMATOSUS
     Dosage: 80U / 1 ML, 2X WEEKLY
     Route: 058
     Dates: start: 201606

REACTIONS (3)
  - Visual impairment [Unknown]
  - Eye discharge [Unknown]
  - Vision blurred [Unknown]

NARRATIVE: CASE EVENT DATE: 2016
